FAERS Safety Report 19603625 (Version 2)
Quarter: 2021Q3

REPORT INFORMATION
  Report Type: Spontaneous
  Country: GB (occurrence: GB)
  Receive Date: 20210724
  Receipt Date: 20210731
  Transmission Date: 20211014
  Serious: Yes (Other)
  Sender: FDA-Public Use
  Company Number: GB-ACCORD-232590

PATIENT
  Sex: Male
  Weight: 76.4 kg

DRUGS (7)
  1. RASBURICASE [Concomitant]
     Active Substance: RASBURICASE
     Indication: PRODUCT USED FOR UNKNOWN INDICATION
  2. VENETOCLAX. [Suspect]
     Active Substance: VENETOCLAX
     Route: 048
     Dates: start: 20210709
  3. AZACITIDINE. [Suspect]
     Active Substance: AZACITIDINE
     Indication: ACUTE MYELOID LEUKAEMIA
     Route: 065
     Dates: start: 20210709
  4. VENETOCLAX. [Suspect]
     Active Substance: VENETOCLAX
     Dosage: ONCE A DAY, DAY 2
     Route: 048
     Dates: start: 20210707, end: 20210707
  5. VENETOCLAX. [Suspect]
     Active Substance: VENETOCLAX
     Dosage: ONCE A DAY, DAY 1
     Route: 048
     Dates: start: 20210708, end: 20210708
  6. VENETOCLAX. [Suspect]
     Active Substance: VENETOCLAX
     Indication: ACUTE MYELOID LEUKAEMIA
     Dosage: ONCE A DAY, DAY 1
     Route: 048
     Dates: start: 20210706, end: 20210706
  7. POSACONAZOLE [Concomitant]
     Active Substance: POSACONAZOLE
     Indication: PRODUCT USED FOR UNKNOWN INDICATION

REACTIONS (20)
  - Renal impairment [Unknown]
  - Blood phosphorus increased [Unknown]
  - White blood cell count decreased [Unknown]
  - Blood creatinine increased [Unknown]
  - Red cell distribution width increased [Unknown]
  - Mean cell haemoglobin concentration decreased [Unknown]
  - Eosinophil count decreased [Unknown]
  - Haemoglobin decreased [Unknown]
  - Mean cell volume increased [Unknown]
  - Blood calcium decreased [Unknown]
  - Electrolyte imbalance [Unknown]
  - Haematocrit decreased [Unknown]
  - Tumour lysis syndrome [Recovered/Resolved]
  - Monocyte count increased [Unknown]
  - Red blood cell count decreased [Unknown]
  - Neutrophil count decreased [Unknown]
  - Lymphocyte count decreased [Unknown]
  - Blood bicarbonate decreased [Unknown]
  - Blood urea increased [Unknown]
  - Platelet count decreased [Unknown]

NARRATIVE: CASE EVENT DATE: 2021
